FAERS Safety Report 9557696 (Version 1)
Quarter: 2013Q3

REPORT INFORMATION
  Report Type: Spontaneous
  Country: US (occurrence: None)
  Receive Date: 20130912
  Receipt Date: 20130912
  Transmission Date: 20140515
  Serious: Yes (Other)
  Sender: FDA-Public Use
  Company Number: 2012033794

PATIENT
  Age: 3 Year
  Sex: Male

DRUGS (2)
  1. HIZENTRA (IMMUNOGLOBULIN HUMAN NORMAL) [Suspect]
     Indication: PRIMARY IMMUNODEFICIENCY SYNDROME
     Route: 058
     Dates: start: 20120928
  2. HIZENTRA (IMMUNOGLOBULIN HUMAN NORMAL) [Suspect]
     Indication: SHWACHMAN-DIAMOND SYNDROME
     Route: 058
     Dates: start: 20120928

REACTIONS (11)
  - Herpes zoster [None]
  - Syncope [None]
  - Psoriasis [None]
  - Lipoma [None]
  - Nausea [None]
  - Vomiting [None]
  - Nausea [None]
  - Diarrhoea [None]
  - Headache [None]
  - Abdominal pain [None]
  - Abdominal pain [None]
